FAERS Safety Report 17511164 (Version 2)
Quarter: 2020Q1

REPORT INFORMATION
  Report Type: Spontaneous
  Country: DE (occurrence: DE)
  Receive Date: 20200306
  Receipt Date: 20200319
  Transmission Date: 20200409
  Serious: Yes (Hospitalization)
  Sender: FDA-Public Use
  Company Number: NVSC2020DE062851

PATIENT
  Age: 81 Year
  Sex: Female
  Weight: 70 kg

DRUGS (3)
  1. CAELYX [Concomitant]
     Active Substance: DOXORUBICIN HYDROCHLORIDE
     Indication: OVARIAN CANCER
     Dosage: 55 MG, QD
     Route: 058
     Dates: start: 20191114, end: 20191114
  2. PEGFILGRASTIM [Suspect]
     Active Substance: PEGFILGRASTIM
     Indication: PRODUCT USED FOR UNKNOWN INDICATION
     Dosage: 6 MG, QD (1ST CYCLE)
     Route: 058
     Dates: start: 20191115
  3. YONDELIS [Concomitant]
     Active Substance: TRABECTEDIN
     Indication: OVARIAN CANCER
     Dosage: 1.5 MG, QD
     Route: 058
     Dates: start: 20191114, end: 20191114

REACTIONS (3)
  - Pyloric stenosis [Recovered/Resolved]
  - Vomiting [Recovered/Resolved]
  - Nausea [Recovered/Resolved]

NARRATIVE: CASE EVENT DATE: 20191202
